FAERS Safety Report 24776831 (Version 1)
Quarter: 2024Q4

REPORT INFORMATION
  Report Type: Spontaneous
  Country: UZ (occurrence: UZ)
  Receive Date: 20241226
  Receipt Date: 20241226
  Transmission Date: 20250115
  Serious: Yes (Death)
  Sender: NOVARTIS
  Company Number: UZ-002147023-NVSC2024UZ244396

PATIENT
  Sex: Female

DRUGS (1)
  1. GLIVEC [Suspect]
     Active Substance: IMATINIB MESYLATE
     Indication: Chronic myeloid leukaemia
     Dosage: 600 MG (6 X 100MG)
     Route: 065

REACTIONS (2)
  - Chronic myeloid leukaemia [Fatal]
  - Disease complication [Fatal]

NARRATIVE: CASE EVENT DATE: 20241101
